FAERS Safety Report 8027785-X (Version None)
Quarter: 2012Q1

REPORT INFORMATION
  Report Type: 
  Country: None (occurrence: None)
  Receive Date: 20120104
  Receipt Date: 20111220
  Transmission Date: 20120608
  Serious: Yes (Life-Threatening)
  Sender: FDA-Public Use
  Company Number: JP-2011-11747

PATIENT
  Age: 58 Year
  Sex: Male

DRUGS (3)
  1. ASPRIRIN (ASPIRIN) [Concomitant]
  2. PLETAL [Suspect]
     Indication: LACUNAR INFARCTION
     Dosage: ORAL
     Route: 048
  3. OZAGREL SODIUM (OZAGREL SODIUM) INJECTION [Concomitant]

REACTIONS (4)
  - VERTEBRAL ARTERY DISSECTION [None]
  - NAUSEA [None]
  - SUBARACHNOID HAEMORRHAGE [None]
  - HEADACHE [None]
